FAERS Safety Report 10156267 (Version 1)
Quarter: 2014Q2

REPORT INFORMATION
  Report Type: Spontaneous
  Country: US (occurrence: US)
  Receive Date: 20140507
  Receipt Date: 20140507
  Transmission Date: 20141212
  Serious: Yes (Hospitalization)
  Sender: FDA-Public Use
  Company Number: US-AMGEN INC.-USASP2014032768

PATIENT
  Age: 52 Year
  Sex: Male

DRUGS (1)
  1. ENBREL [Suspect]
     Indication: PSORIASIS
     Dosage: UNK MG, QWK
     Route: 065
     Dates: start: 20120423

REACTIONS (6)
  - Fall [Recovered/Resolved]
  - Mobility decreased [Recovered/Resolved]
  - Joint swelling [Recovered/Resolved]
  - Balance disorder [Not Recovered/Not Resolved]
  - Blood pressure increased [Unknown]
  - Psoriasis [Not Recovered/Not Resolved]
